FAERS Safety Report 15104243 (Version 2)
Quarter: 2019Q1

REPORT INFORMATION
  Report Type: Other
  Country: US (occurrence: US)
  Receive Date: 20180703
  Receipt Date: 20190212
  Transmission Date: 20190417
  Serious: Yes (Life-Threatening, Hospitalization, Other)
  Sender: FDA-Public Use
  Company Number: US-C B FLEET CO INC-201806-US-001410

PATIENT
  Age: 26 Year
  Sex: Female

DRUGS (7)
  1. ASPIRIN. [Suspect]
     Active Substance: ASPIRIN
     Indication: SUICIDE ATTEMPT
     Route: 048
  2. PRENATAL VITAMINS [Concomitant]
     Active Substance: VITAMINS
  3. AMPHETAMINE/METHAMPHETAMINE [Concomitant]
  4. BUPRENORPHINE. [Concomitant]
     Active Substance: BUPRENORPHINE
  5. ACETAMINOPHEN. [Concomitant]
     Active Substance: ACETAMINOPHEN
  6. FENTANYL. [Concomitant]
     Active Substance: FENTANYL
  7. QUETIAPINE. [Concomitant]
     Active Substance: QUETIAPINE

REACTIONS (4)
  - Respiratory failure [Unknown]
  - Exposure during pregnancy [Unknown]
  - Overdose [None]
  - Suicide attempt [Unknown]
